FAERS Safety Report 16840344 (Version 1)
Quarter: 2019Q3

REPORT INFORMATION
  Report Type: Report from Study
  Country: US (occurrence: US)
  Receive Date: 20190923
  Receipt Date: 20190923
  Transmission Date: 20191005
  Serious: Yes (Hospitalization)
  Sender: FDA-Public Use
  Company Number: US-PFIZER INC-2019404641

PATIENT
  Age: 19 Month
  Sex: Male
  Weight: 10.4 kg

DRUGS (5)
  1. CYCLOPHOSPHAMIDE. [Suspect]
     Active Substance: CYCLOPHOSPHAMIDE
     Dosage: PER DOSING TABLE, IV OVER 60 MINUTES ON DAY 1 OF CYCLES 1 AND 3
     Route: 042
     Dates: start: 20190329
  2. TEMSIROLIMUS. [Suspect]
     Active Substance: TEMSIROLIMUS
     Dosage: 15 MG/M2, IV OVER 30-60 MINUTES ON DAYS 1, 8, AND 15
     Route: 042
     Dates: start: 20190329
  3. DACTINOMYCIN [Suspect]
     Active Substance: DACTINOMYCIN
     Dosage: PER DOSING TABLE FOR PATIENTS {14 KG IV OVER 1-5 MINUTES ON DAY 1 OF CYCLES 1 AND 3
     Route: 042
     Dates: start: 20190329
  4. IRINOTECAN HCL [Suspect]
     Active Substance: IRINOTECAN HYDROCHLORIDE
     Dosage: PER DOSING TABLE FOR PATIENTS { 0.6 M2 IV OVER 90 MINUTES ON DAYS 1-5 OF CYCLES 2 AND 4
     Route: 042
     Dates: start: 20190329
  5. VINCRISTINE SULFATE. [Suspect]
     Active Substance: VINCRISTINE SULFATE
     Dosage: PER DOSING TABLE, IV OVER 1 MINUTE OR INFUSION VIA MINIBAG ON DAYS 1, 8, AND 15
     Route: 042
     Dates: start: 20190329

REACTIONS (1)
  - Dehydration [Recovered/Resolved]

NARRATIVE: CASE EVENT DATE: 20190701
